FAERS Safety Report 4806008-6 (Version None)
Quarter: 2005Q4

REPORT INFORMATION
  Report Type: 
  Country: None (occurrence: None)
  Receive Date: 20051021
  Receipt Date: 20051010
  Transmission Date: 20060501
  Serious: Yes (Death)
  Sender: FDA-Public Use
  Company Number: GB-GLAXOSMITHKLINE-B0396792A

PATIENT
  Sex: Female

DRUGS (5)
  1. SEROXAT [Suspect]
     Indication: ANXIETY
     Dosage: 10MG PER DAY
     Route: 065
     Dates: start: 20050429
  2. SOTALOL HCL [Concomitant]
     Indication: ATRIAL FIBRILLATION
     Dosage: 40MG PER DAY
  3. ATORVASTATIN [Concomitant]
  4. ASPIRIN [Concomitant]
     Indication: ATRIAL FIBRILLATION
  5. LOSARTAN POTASSIUM [Concomitant]
     Indication: HYPERTENSION

REACTIONS (2)
  - COMPLETED SUICIDE [None]
  - ILL-DEFINED DISORDER [None]
